FAERS Safety Report 18653403 (Version 3)
Quarter: 2021Q1

REPORT INFORMATION
  Report Type: Report from Study
  Country: GB (occurrence: GB)
  Receive Date: 20201223
  Receipt Date: 20210108
  Transmission Date: 20210419
  Serious: Yes (Death, Other)
  Sender: FDA-Public Use
  Company Number: GB-TAKEDA-2020TUS059175

PATIENT
  Sex: Male

DRUGS (3)
  1. METFORMIN [Concomitant]
     Active Substance: METFORMIN HYDROCHLORIDE
     Indication: DIABETES MELLITUS
     Dosage: UNK
     Route: 065
  2. PONATINIB [Suspect]
     Active Substance: PONATINIB
     Indication: CHRONIC MYELOID LEUKAEMIA
     Dosage: 45 MILLIGRAM
     Route: 048
     Dates: start: 20190513, end: 20191128
  3. PONATINIB [Suspect]
     Active Substance: PONATINIB
     Indication: TYROSINE KINASE MUTATION

REACTIONS (3)
  - Drug ineffective [Unknown]
  - Cytomegalovirus infection reactivation [Fatal]
  - Chronic myeloid leukaemia recurrent [Unknown]
